FAERS Safety Report 23681312 (Version 2)
Quarter: 2024Q1

REPORT INFORMATION
  Report Type: Spontaneous
  Country: AU (occurrence: AU)
  Receive Date: 20240328
  Receipt Date: 20240328
  Transmission Date: 20240409
  Serious: Yes (Other)
  Sender: FDA-Public Use
  Company Number: AU-CURIUM-2024000173

PATIENT
  Age: 65 Year
  Sex: Male

DRUGS (1)
  1. BETIATIDE [Suspect]
     Active Substance: BETIATIDE
     Indication: Renal transplant
     Route: 065
     Dates: start: 20231026, end: 20231026

REACTIONS (1)
  - Anaphylactic reaction [Unknown]

NARRATIVE: CASE EVENT DATE: 20231027
